FAERS Safety Report 19501714 (Version 1)
Quarter: 2021Q3

REPORT INFORMATION
  Report Type: Spontaneous
  Country: US (occurrence: US)
  Receive Date: 20210707
  Receipt Date: 20210707
  Transmission Date: 20211014
  Serious: Yes (Other)
  Sender: FDA-Public Use
  Company Number: None

PATIENT
  Age: 3 Year
  Sex: Male

DRUGS (2)
  1. LORBRENA [Suspect]
     Active Substance: LORLATINIB
     Indication: ADRENAL GLAND CANCER
     Dosage: ?          OTHER FREQUENCY:4 DAYS PER WEEK;?
     Route: 048
     Dates: start: 20210507
  2. CHOCOLATE LAXATIVE, VITAMIN D, CYPROHEPTADINE [Concomitant]

REACTIONS (2)
  - Therapy cessation [None]
  - Tumour excision [None]

NARRATIVE: CASE EVENT DATE: 20210626
